FAERS Safety Report 7231090-9 (Version None)
Quarter: 2011Q1

REPORT INFORMATION
  Report Type: 
  Country: None (occurrence: None)
  Receive Date: 20110118
  Receipt Date: 20101126
  Transmission Date: 20110831
  Serious: Yes (Other)
  Sender: FDA-Public Use
  Company Number: GB-AMGEN-GBRCT2010001057

PATIENT

DRUGS (6)
  1. ETANERCEPT [Suspect]
     Indication: RHEUMATOID ARTHRITIS
     Dosage: 25 MG, 2 TIMES/WK
     Dates: start: 20060421
  2. FOSAMAX [Concomitant]
     Dosage: UNKNOWN
     Route: 065
  3. FOLIC ACID [Concomitant]
     Dosage: UNKNOWN
     Route: 065
  4. PREDNISOLONE [Concomitant]
     Dosage: UNKNOWN
     Route: 065
  5. ETANERCEPT [Suspect]
     Dosage: 25 MG, 2X/WEEK
     Route: 058
     Dates: start: 20060421
  6. METHOTREXATE [Concomitant]
     Dosage: UNKNOWN
     Route: 065

REACTIONS (1)
  - BENIGN NEOPLASM OF SKIN [None]
